FAERS Safety Report 19949194 (Version 1)
Quarter: 2021Q4

REPORT INFORMATION
  Report Type: Spontaneous
  Country: DE (occurrence: DE)
  Receive Date: 20211013
  Receipt Date: 20211013
  Transmission Date: 20220303
  Serious: Yes (Hospitalization)
  Sender: FDA-Public Use
  Company Number: DE-ADRED-06574-01

PATIENT
  Age: 75 Year
  Sex: Male
  Weight: 110 kg

DRUGS (17)
  1. CLOPIDOGREL [Suspect]
     Active Substance: CLOPIDOGREL BISULFATE
     Indication: Product used for unknown indication
     Dosage: UNK (75 MG, 1-0-0-0, TABLETTEN)
     Route: 048
  2. POLYETHYLENE GLYCOLS [Concomitant]
     Active Substance: POLYETHYLENE GLYCOLS
     Dosage: UNK (1-0-1-0, PULVER)
     Route: 048
  3. CEFUROXIME [Concomitant]
     Active Substance: CEFUROXIME
     Dosage: UNK (500 MG, 1-0-1-0, TABLETTEN)
     Route: 048
  4. INSULIN ASPART [Concomitant]
     Active Substance: INSULIN ASPART
     Dosage: UNK (25 IE, 1-1-1-0, INJEKTIONS-/INFUSIONSL?SUNG)
     Route: 058
  5. INSULIN HUMAN [Concomitant]
     Active Substance: INSULIN HUMAN
     Dosage: UNK (30 IE, 0-0-0-1, INJEKTIONS-/INFUSIONSL?SUNG)
     Route: 058
  6. BISOPROLOL [Concomitant]
     Active Substance: BISOPROLOL
     Dosage: UNK (5 MG, 1-0-1-0, TABLETTEN)
     Route: 048
  7. SOLIFENACIN [Concomitant]
     Active Substance: SOLIFENACIN
     Dosage: UNK (5 MG, 1-0-0-0, TABLETTEN)
     Route: 048
  8. TRAMADOL [Concomitant]
     Active Substance: TRAMADOL
     Dosage: UNK (4 HUB, 1-1-1-0, TROPFEN)
     Route: 048
  9. DALTEPARIN [Concomitant]
     Active Substance: DALTEPARIN
     Dosage: UNK (0.2 ML, 0-0-1-0, INJEKTIONS-/INFUSIONSL?SUNG)
     Route: 058
  10. DICLOFENAC [Concomitant]
     Active Substance: DICLOFENAC
     Dosage: UNK (75 MG, 1-0-0-0, TABLETTEN)
     Route: 048
  11. METAMIZOLE [Concomitant]
     Active Substance: METAMIZOLE
     Dosage: UNK (20 GTT, 1-1-1-0, TROPFEN)
     Route: 048
  12. LERCANIDIPINE [Concomitant]
     Active Substance: LERCANIDIPINE
     Dosage: UNK (10 MG, 0-2-0-0, TABLETTEN)
     Route: 048
  13. IRBESARTAN AND HYDROCHLOROTHIAZIDE [Concomitant]
     Active Substance: HYDROCHLOROTHIAZIDE\IRBESARTAN
     Dosage: UNK (12.5/150 MG, 2-0-0-0, TABLETTEN)
     Route: 048
  14. ASPIRIN [Concomitant]
     Active Substance: ASPIRIN
     Dosage: UNK (100 MG, 0-1-0-0, TABLETTEN)
     Route: 048
  15. PANTOPRAZOLE [Concomitant]
     Active Substance: PANTOPRAZOLE
     Dosage: UNK (40 MG, 1-0-0-0, TABLETTEN)
     Route: 048
  16. FEBUXOSTAT [Concomitant]
     Active Substance: FEBUXOSTAT
     Dosage: UNK (80 MG, 0-0-1-0, TABLETTEN)
     Route: 048
  17. EMPAGLIFLOZIN [Concomitant]
     Active Substance: EMPAGLIFLOZIN
     Dosage: UNK (10 MG, 1-0-0-0, TABLETTEN)
     Route: 048

REACTIONS (2)
  - Haematuria [Unknown]
  - Contraindicated product administered [Unknown]

NARRATIVE: CASE EVENT DATE: 20200930
